FAERS Safety Report 4350606-3 (Version None)
Quarter: 2004Q2

REPORT INFORMATION
  Report Type: 
  Country: None (occurrence: None)
  Receive Date: 20040429
  Receipt Date: 20040420
  Transmission Date: 20050107
  Serious: Yes (Other)
  Sender: FDA-Public Use
  Company Number: 2004027124

PATIENT
  Age: 20 Year
  Sex: Female
  Weight: 86.1834 kg

DRUGS (1)
  1. DRAMAMINE [Suspect]
     Indication: LABYRINTHITIS
     Dosage: 3 TABLETS TOTAL IN 2 DAYS, ORAL
     Route: 048
     Dates: start: 20040418, end: 20040419

REACTIONS (4)
  - DYSPNOEA [None]
  - HYPERSENSITIVITY [None]
  - OROPHARYNGEAL SWELLING [None]
  - SPEECH DISORDER [None]
